FAERS Safety Report 12500488 (Version 1)
Quarter: 2016Q2

REPORT INFORMATION
  Report Type: Spontaneous
  Country: PE (occurrence: PE)
  Receive Date: 20160627
  Receipt Date: 20160627
  Transmission Date: 20160815
  Serious: Yes (Other)
  Sender: FDA-Public Use
  Company Number: PE-GLAXOSMITHKLINE-PE2016GSK090786

PATIENT
  Age: 64 Year
  Sex: Female

DRUGS (1)
  1. SERETIDE [Suspect]
     Active Substance: FLUTICASONE PROPIONATE\SALMETEROL XINAFOATE
     Indication: ASTHMA
     Dosage: 2 PUFF(S), 1D
     Route: 055
     Dates: start: 20130910

REACTIONS (2)
  - Road traffic accident [Unknown]
  - Facial bones fracture [Recovering/Resolving]

NARRATIVE: CASE EVENT DATE: 201603
